FAERS Safety Report 8361609-6 (Version None)
Quarter: 2012Q2

REPORT INFORMATION
  Report Type: 
  Country: None (occurrence: None)
  Receive Date: 20120515
  Receipt Date: 20120502
  Transmission Date: 20120825
  Serious: No
  Sender: FDA-Public Use
  Company Number: US-BAYER-2012-043604

PATIENT
  Sex: Male
  Weight: 122 kg

DRUGS (2)
  1. NAPROXEN SODIUM [Suspect]
     Dosage: 2 DF, PRN
     Route: 048
  2. ASPIRIN [Concomitant]
     Indication: ANALGESIC THERAPY
     Dosage: 1 DF, QD
     Route: 048

REACTIONS (1)
  - NO ADVERSE EVENT [None]
